FAERS Safety Report 19184569 (Version 1)
Quarter: 2021Q2

REPORT INFORMATION
  Report Type: Spontaneous
  Country: GB (occurrence: GB)
  Receive Date: 20210427
  Receipt Date: 20210427
  Transmission Date: 20210717
  Serious: Yes (Other)
  Sender: FDA-Public Use
  Company Number: GB-PFIZER INC-2021416617

PATIENT
  Sex: Male
  Weight: 177 kg

DRUGS (2)
  1. FRAGMIN [Suspect]
     Active Substance: DALTEPARIN SODIUM
     Indication: THROMBOSIS
     Dosage: 18000 IU
  2. FRAGMIN [Suspect]
     Active Substance: DALTEPARIN SODIUM
     Dosage: 36000 IU

REACTIONS (5)
  - Overdose [Unknown]
  - Muscle rupture [Recovered/Resolved]
  - Blood urine [Recovered/Resolved]
  - Haemorrhage [Recovered/Resolved]
  - Injection site swelling [Recovered/Resolved]
